FAERS Safety Report 13874165 (Version 6)
Quarter: 2020Q1

REPORT INFORMATION
  Report Type: Spontaneous
  Country: US (occurrence: US)
  Receive Date: 20170816
  Receipt Date: 20200225
  Transmission Date: 20200409
  Serious: Yes (Hospitalization)
  Sender: FDA-Public Use
  Company Number: US-ACTELION-A-NJ2017-158163

PATIENT
  Sex: Female
  Weight: 28.12 kg

DRUGS (6)
  1. VENTAVIS [Suspect]
     Active Substance: ILOPROST
     Dosage: 5 MCG, 6-9 TIMES DAILY
     Route: 055
  2. ADCIRCA [Concomitant]
     Active Substance: TADALAFIL
  3. TYVASO [Concomitant]
     Active Substance: TREPROSTINIL
  4. LETAIRIS [Concomitant]
     Active Substance: AMBRISENTAN
  5. VENTAVIS [Suspect]
     Active Substance: ILOPROST
     Indication: PULMONARY HYPERTENSION
     Dosage: PRN, RESCUE MED
     Route: 055
  6. VENTAVIS [Suspect]
     Active Substance: ILOPROST
     Dosage: 10 MCG, Q2-3 HRS, PRN FOR O2 SATURATION BELOW80%
     Route: 055

REACTIONS (5)
  - Rhinovirus infection [Recovering/Resolving]
  - Influenza [Recovering/Resolving]
  - Aqueductal stenosis [Unknown]
  - Upper respiratory tract infection [Unknown]
  - Ventriculo-peritoneal shunt [Unknown]
